FAERS Safety Report 8835904 (Version 1)
Quarter: 2012Q4

REPORT INFORMATION
  Report Type: 
  Country: GB (occurrence: GB)
  Receive Date: 20121011
  Receipt Date: 20121011
  Transmission Date: 20130627
  Serious: Yes (Other)
  Sender: FDA-Public Use
  Company Number: GB-PERRIGO-12GB008582

PATIENT
  Age: 52 Year
  Sex: Female
  Weight: 73.47 kg

DRUGS (2)
  1. IBUPROFEN 16028/0013 200 MG [Suspect]
     Indication: HEADACHE
     Dosage: 400 mg, UNK
     Route: 048
     Dates: start: 20120909, end: 20120921
  2. IBUPROFEN 16028/0013 200 MG [Suspect]
     Indication: SCIATICA

REACTIONS (1)
  - Vomiting [Recovered/Resolved with Sequelae]
